FAERS Safety Report 10390339 (Version 16)
Quarter: 2016Q3

REPORT INFORMATION
  Report Type: Spontaneous
  Country: US (occurrence: US)
  Receive Date: 20140818
  Receipt Date: 20160829
  Transmission Date: 20161109
  Serious: Yes (Hospitalization)
  Sender: FDA-Public Use
  Company Number: US-PFIZER INC-2014227824

PATIENT
  Age: 54 Year
  Sex: Male
  Weight: 81.65 kg

DRUGS (60)
  1. ATIVAN [Concomitant]
     Active Substance: LORAZEPAM
     Indication: ANXIETY
     Dosage: 0.5 MG, AS NEEDED (EVERY 6 HOURS AS NEEDED)
     Route: 048
  2. SUTENT [Suspect]
     Active Substance: SUNITINIB MALATE
     Dosage: 25MG +12.5MG QD 28 DAYS ON /12 DAYS OFF
     Route: 048
  3. MAGNESIUM [Concomitant]
     Active Substance: MAGNESIUM
     Indication: MAGNESIUM DEFICIENCY
     Dosage: 400 MG, ALTERNATE DAY
     Route: 048
  4. FLOMAX [Concomitant]
     Active Substance: TAMSULOSIN HYDROCHLORIDE
     Indication: PROSTATIC DISORDER
     Dosage: 0.4 MG, 1X/DAY (NIGHTLY)
     Route: 048
  5. LISINOPRIL. [Concomitant]
     Active Substance: LISINOPRIL
     Indication: HYPERTENSION
     Dosage: 40 MG, 1X/DAY
     Dates: start: 2006
  6. COMPAZINE [Concomitant]
     Active Substance: PROCHLORPERAZINE MALEATE
     Dosage: UNK, 3X/DAY
     Route: 048
     Dates: start: 201307, end: 20160810
  7. VITAMIN D3 [Concomitant]
     Active Substance: CHOLECALCIFEROL
     Indication: CALCIUM DEFICIENCY
     Dosage: 1000 IU, DAILY
     Route: 048
  8. SYNTHROID [Concomitant]
     Active Substance: LEVOTHYROXINE SODIUM
     Indication: THYROID DISORDER
     Dosage: 112 UG, 1X/DAY (112MCG/EVERY MORNING (BEFORE BREAKFAST))
     Route: 048
  9. LORAZEPAM. [Concomitant]
     Active Substance: LORAZEPAM
     Indication: ANXIETY
     Dosage: 0.5 MG, UNK (THREE TO FOUR TIMES A DAY)
  10. CURCUMIN [Concomitant]
     Active Substance: CURCUMIN
     Indication: SUPPLEMENTATION THERAPY
     Dosage: UNK, 1X/DAY
     Dates: start: 201607
  11. IMODIUM AD [Concomitant]
     Active Substance: LOPERAMIDE HYDROCHLORIDE
     Indication: DIARRHOEA
     Dosage: UNK, 3X/DAY
     Dates: start: 201307, end: 20160816
  12. SUTENT [Suspect]
     Active Substance: SUNITINIB MALATE
     Dosage: 37.5 MG, 1X/DAY
     Route: 048
     Dates: start: 201307
  13. MAGNESIUM [Concomitant]
     Active Substance: MAGNESIUM
     Indication: BLOOD COUNT ABNORMAL
     Dosage: UNK, 1X/DAY
     Route: 048
     Dates: start: 2011
  14. COMPAZINE [Concomitant]
     Active Substance: PROCHLORPERAZINE MALEATE
     Indication: NAUSEA
     Dosage: 10 MG, AS NEEDED (EVERY 6 HOURS AS NEEDED)
     Route: 048
  15. PRINIVIL [Concomitant]
     Active Substance: LISINOPRIL
     Indication: HYPERTENSION
     Dosage: 40 MG, DAILY
     Route: 048
  16. MAG-200 [Concomitant]
     Dosage: 400 MG, DAILY (EVERY OTHER DAY)
     Route: 048
  17. TOPROL XL [Concomitant]
     Active Substance: METOPROLOL SUCCINATE
     Dosage: 0.5 MG, DAILY
     Route: 048
  18. PAXIL [Concomitant]
     Active Substance: PAROXETINE HYDROCHLORIDE
     Dosage: 25 MG, 1X/DAY (ONCE IN THE MORNING)
     Dates: start: 2014
  19. ASPIRIN. [Concomitant]
     Active Substance: ASPIRIN
     Indication: CARDIAC DISORDER
     Dosage: 81 MG, 1X/DAY
     Route: 048
  20. HYDROCHLOROTHIAZIDE. [Concomitant]
     Active Substance: HYDROCHLOROTHIAZIDE
     Indication: HYPERTENSION
     Dosage: 25 MG, 1X/DAY
     Route: 048
     Dates: start: 2012
  21. POTASSIUM [Concomitant]
     Active Substance: POTASSIUM
     Indication: HYPOKALAEMIA
     Dosage: 20 MEQ, ALTERNATE DAY (ONCE A DAY. EVERY OTHER DAY. MAY TAKE 4 OR 5 A WEEK)
     Dates: start: 2012
  22. CITRUCEL [Concomitant]
     Active Substance: METHYLCELLULOSE (4000 MPA.S)
     Dosage: UNK
  23. ZESTRIL [Concomitant]
     Active Substance: LISINOPRIL
     Indication: HYPERTENSION
     Dosage: 40 MG, DAILY
     Route: 048
  24. SUTENT [Suspect]
     Active Substance: SUNITINIB MALATE
     Dosage: 37.5 MG, DAILY (DAILY FOR 26 DAYS)
     Route: 048
  25. CORTEF [Concomitant]
     Active Substance: HYDROCORTISONE
     Dosage: 20 MG, 1X/DAY (EVERY MORNING)
     Route: 048
  26. METOPROLOL. [Concomitant]
     Active Substance: METOPROLOL
     Indication: HYPERTENSION
     Dosage: 100 MG, 1X/DAY
     Dates: start: 2006
  27. PAXIL [Concomitant]
     Active Substance: PAROXETINE HYDROCHLORIDE
     Indication: DEPRESSION
     Dosage: 20 MG, 1X/DAY (EVERY MORNING)
     Route: 048
  28. FLUDROCORTISONE [Concomitant]
     Active Substance: FLUDROCORTISONE
     Indication: ADRENAL DISORDER
     Dosage: 0.1 MG, 1X/DAY
     Dates: start: 201104
  29. PROBIOTICS [Concomitant]
     Active Substance: PROBIOTICS NOS
     Indication: IMMUNE SYSTEM DISORDER
     Dosage: UNK, 1X/DAY (20 BILLION, ONCE IN THE MORNING)
     Dates: start: 201604
  30. SUTENT [Suspect]
     Active Substance: SUNITINIB MALATE
     Indication: METASTATIC RENAL CELL CARCINOMA
     Dosage: 50 MG, OTHER DAILY
     Route: 048
     Dates: start: 20130731, end: 2013
  31. SUTENT [Suspect]
     Active Substance: SUNITINIB MALATE
     Dosage: 37.5 MG, CYCLIC (26 DAYS ON AND 16 DAYS OFF)
     Route: 048
  32. CORTEF [Concomitant]
     Active Substance: HYDROCORTISONE
     Dosage: 10 MG FIVE TIMES A WEEK
     Route: 048
  33. OMEPRAZOLE. [Concomitant]
     Active Substance: OMEPRAZOLE
     Indication: ABDOMINAL DISCOMFORT
  34. HYDROCORTISONE. [Concomitant]
     Active Substance: HYDROCORTISONE
     Indication: ADRENAL DISORDER
     Dosage: (10MG TABLET, 1 IN THE MORNING AND 2 IN THE AFTERNOON)
     Dates: start: 201103
  35. VITAMIN D3 [Concomitant]
     Active Substance: CHOLECALCIFEROL
     Dosage: 2000 IU, UNK
     Route: 048
  36. K-DUR [Concomitant]
     Active Substance: POTASSIUM CHLORIDE
     Dosage: 20 MEQ, DAILY
     Route: 048
  37. TAMSULOSIN [Concomitant]
     Active Substance: TAMSULOSIN
     Indication: PROSTATIC DISORDER
     Dosage: 0.4 MG, 1X/DAY (AT NIGHT)
  38. FLUDROCORTISONE [Concomitant]
     Active Substance: FLUDROCORTISONE
     Dosage: 0.1 MG, 1X/DAY
     Dates: start: 201103
  39. CALCIUM [Concomitant]
     Active Substance: CALCIUM
     Dosage: 200 IU, 2X/DAY
  40. BUSPIRONE [Concomitant]
     Active Substance: BUSPIRONE HYDROCHLORIDE
     Indication: DEPRESSION
     Dosage: 5 MG, 3X/DAY (1 TABLET 3 TIMES PER DAY)
     Dates: start: 201606
  41. SUTENT [Suspect]
     Active Substance: SUNITINIB MALATE
     Dosage: 50 MG, 1X/DAY (IN THE MORNING)
     Route: 048
     Dates: start: 201307
  42. SUTENT [Suspect]
     Active Substance: SUNITINIB MALATE
     Dosage: 37.5 MG, CYCLIC (ONCE DAILY, BY MOUTH FOR 26 DAYS THEN 16 DAYS OFF)
     Route: 048
     Dates: start: 201307, end: 20160810
  43. CORTEF [Concomitant]
     Active Substance: HYDROCORTISONE
     Dosage: 10 MG, 1X/DAY (IN AFTERNOON 5 DAYS PER WEEK)
     Route: 048
  44. HYDROCHLOROTHIAZIDE. [Concomitant]
     Active Substance: HYDROCHLOROTHIAZIDE
     Indication: FLUID RETENTION
  45. IMODIUM [Concomitant]
     Active Substance: LOPERAMIDE HYDROCHLORIDE
     Dosage: 2 MG, AS NEEDED (3 TIMES DAILY AS NEEDED)
     Route: 048
  46. ATIVAN [Concomitant]
     Active Substance: LORAZEPAM
     Indication: INSOMNIA
  47. LEVOTHROID [Concomitant]
     Active Substance: LEVOTHYROXINE SODIUM
     Indication: THYROID DISORDER
     Dosage: 112 UG, 1X/DAY (EVERY MORNING (BEFORE BREAKFAST))(TAKING FOR TWO YEARS MAYBE)
     Route: 048
  48. LORAZEPAM. [Concomitant]
     Active Substance: LORAZEPAM
     Indication: INSOMNIA
     Dosage: 0.5 MG, 3X/DAY
     Dates: start: 2013
  49. LEVOTHYROXINE. [Concomitant]
     Active Substance: LEVOTHYROXINE
     Indication: THYROID DISORDER
     Dosage: 112 UG, 1X/DAY, (BEFORE BREAKFAST)
  50. SUTENT [Suspect]
     Active Substance: SUNITINIB MALATE
     Dosage: 37.5 MG, DAILY
     Route: 048
     Dates: start: 20130731
  51. SUTENT [Suspect]
     Active Substance: SUNITINIB MALATE
     Dosage: 37.5 MG, 1X/DAY
     Route: 048
  52. CORTEF [Concomitant]
     Active Substance: HYDROCORTISONE
     Indication: ADRENAL DISORDER
     Dosage: 30 MG, 2X/DAY (2 TABS IN THE MORNING + TAKE 1 TABLET IN THE AFTERNOON)
  53. OMEPRAZOLE. [Concomitant]
     Active Substance: OMEPRAZOLE
     Indication: GASTROOESOPHAGEAL REFLUX DISEASE
     Dosage: 20 MG, 1X/DAY (IN THE MORNING BEFORE BREAKFAST)
     Route: 048
     Dates: start: 2012
  54. CICATRAL [Concomitant]
     Indication: CALCIUM DEFICIENCY
     Dosage: 250 MG, 2X/DAY
     Route: 048
  55. PRILOSEC [Concomitant]
     Active Substance: OMEPRAZOLE MAGNESIUM
     Dosage: 20 MG, 1X/DAY (EVERY MORNING (BEFORE BREAKFAST))
     Route: 048
  56. VITAMIN D [Concomitant]
     Active Substance: CHOLECALCIFEROL
     Dosage: 2000 IU, UNK
  57. CALCIUM [Concomitant]
     Active Substance: CALCIUM
     Indication: CALCIUM DEFICIENCY
     Dosage: 250 MG, UNK
  58. SUTENT [Suspect]
     Active Substance: SUNITINIB MALATE
     Indication: RENAL CELL CARCINOMA
     Dosage: 37.5 MG, UNK
     Route: 048
     Dates: start: 20130817
  59. FLORINEF ACETATE [Concomitant]
     Active Substance: FLUDROCORTISONE ACETATE
     Indication: ADRENALECTOMY
     Dosage: 0.1 MG, 1X/DAY
  60. COMPAZINE [Concomitant]
     Active Substance: PROCHLORPERAZINE MALEATE
     Dosage: 10 MG, 4X/DAY
     Route: 048
     Dates: start: 201108

REACTIONS (31)
  - Fatigue [Not Recovered/Not Resolved]
  - Arthralgia [Unknown]
  - Joint swelling [Unknown]
  - Malaise [Unknown]
  - Depression [Unknown]
  - Dysgeusia [Recovering/Resolving]
  - Hypersomnia [Unknown]
  - Gout [Unknown]
  - Feeling abnormal [Unknown]
  - Fungal infection [Unknown]
  - Bronchial disorder [Recovering/Resolving]
  - Diarrhoea [Recovering/Resolving]
  - Back pain [Unknown]
  - Cough [Unknown]
  - Hyperhidrosis [Unknown]
  - Weight increased [Unknown]
  - Ageusia [Recovering/Resolving]
  - Nasopharyngitis [Not Recovered/Not Resolved]
  - Disease progression [Not Recovered/Not Resolved]
  - Metastatic renal cell carcinoma [Not Recovered/Not Resolved]
  - Asthenia [Not Recovered/Not Resolved]
  - Pneumonia [Recovering/Resolving]
  - Hypertension [Not Recovered/Not Resolved]
  - Hair colour changes [Unknown]
  - Pain [Unknown]
  - Decreased appetite [Unknown]
  - Dyspnoea [Unknown]
  - Nausea [Recovering/Resolving]
  - Vomiting [Unknown]
  - Thyroid disorder [Unknown]
  - Weight decreased [Not Recovered/Not Resolved]

NARRATIVE: CASE EVENT DATE: 2013
